FAERS Safety Report 14525543 (Version 1)
Quarter: 2018Q1

REPORT INFORMATION
  Report Type: Spontaneous
  Country: US (occurrence: US)
  Receive Date: 20180210
  Receipt Date: 20180210
  Transmission Date: 20180509
  Serious: No
  Sender: FDA-Public Use
  Company Number: None

PATIENT
  Age: 61 Year
  Sex: Male
  Weight: 78.75 kg

DRUGS (4)
  1. ASPIRIN. [Concomitant]
     Active Substance: ASPIRIN
  2. CQ-10 [Concomitant]
  3. EFFIENT [Concomitant]
     Active Substance: PRASUGREL HYDROCHLORIDE
  4. ATORVASTATIN 10 MG [Suspect]
     Active Substance: ATORVASTATIN

REACTIONS (2)
  - Blood creatine phosphokinase increased [None]
  - Therapy cessation [None]

NARRATIVE: CASE EVENT DATE: 20180205
